FAERS Safety Report 5234911-4 (Version None)
Quarter: 2007Q1

REPORT INFORMATION
  Report Type: 
  Country: None (occurrence: None)
  Receive Date: 20070209
  Receipt Date: 20070129
  Transmission Date: 20070707
  Serious: Yes (Hospitalization)
  Sender: FDA-Public Use
  Company Number: HQWYE656127OCT06

PATIENT
  Sex: Female
  Weight: 53 kg

DRUGS (7)
  1. ENBREL [Suspect]
     Indication: RHEUMATOID ARTHRITIS
     Route: 058
     Dates: start: 20050723, end: 20061011
  2. SULFASALAZINE [Concomitant]
     Indication: RHEUMATOID ARTHRITIS
     Route: 048
     Dates: start: 20051121, end: 20061010
  3. PRELONE [Concomitant]
     Indication: RHEUMATOID ARTHRITIS
     Route: 048
     Dates: start: 20050723, end: 20050920
  4. PRELONE [Concomitant]
     Route: 048
     Dates: start: 20050921, end: 20060728
  5. PRELONE [Concomitant]
     Route: 048
     Dates: start: 20060729, end: 20061010
  6. LOXOPROFEN SODIUM [Concomitant]
     Indication: RHEUMATOID ARTHRITIS
     Route: 048
     Dates: start: 20051224, end: 20061010
  7. AZULFIDINE [Concomitant]
     Indication: RHEUMATOID ARTHRITIS
     Route: 048
     Dates: end: 20051120

REACTIONS (1)
  - PERITONITIS [None]
